FAERS Safety Report 19743287 (Version 2)
Quarter: 2022Q3

REPORT INFORMATION
  Report Type: Spontaneous
  Country: US (occurrence: US)
  Receive Date: 20210825
  Receipt Date: 20220911
  Transmission Date: 20221027
  Serious: No
  Sender: FDA-Public Use
  Company Number: US-SA-SAC20210824001232

PATIENT
  Sex: Female
  Weight: 56.6 kg

DRUGS (4)
  1. CEREZYME [Suspect]
     Active Substance: IMIGLUCERASE
     Indication: Gaucher^s disease
     Dosage: 4800 IU, Q4W
     Dates: start: 20140131
  2. EPINEPHRINE [Concomitant]
     Active Substance: EPINEPHRINE
  3. CALCIUM\CHOLECALCIFEROL [Concomitant]
     Active Substance: CALCIUM\CHOLECALCIFEROL
  4. STERILE WATER [Concomitant]
     Active Substance: WATER

REACTIONS (1)
  - Dermatitis contact [Unknown]
